FAERS Safety Report 16204511 (Version 3)
Quarter: 2019Q2

REPORT INFORMATION
  Report Type: Spontaneous
  Country: PL (occurrence: PL)
  Receive Date: 20190416
  Receipt Date: 20190524
  Transmission Date: 20190711
  Serious: Yes (Life-Threatening, Hospitalization, Other)
  Sender: FDA-Public Use
  Company Number: PL-ACTELION-A-US2019-189209

PATIENT
  Age: 30 Year
  Sex: Female

DRUGS (5)
  1. NITRIC OXIDE. [Suspect]
     Active Substance: NITRIC OXIDE
     Indication: PRODUCT USED FOR UNKNOWN INDICATION
     Route: 055
  2. VENTAVIS [Suspect]
     Active Substance: ILOPROST
     Indication: PULMONARY ARTERIAL HYPERTENSION
     Route: 055
  3. SILDENAFIL. [Suspect]
     Active Substance: SILDENAFIL
     Indication: PULMONARY ARTERIAL HYPERTENSION
     Route: 055
  4. EPOPROSTENOL. [Suspect]
     Active Substance: EPOPROSTENOL
     Indication: PULMONARY ARTERIAL HYPERTENSION
     Route: 065
  5. LEVOSIMENDAN [Suspect]
     Active Substance: LEVOSIMENDAN
     Indication: PRODUCT USED FOR UNKNOWN INDICATION
     Route: 042

REACTIONS (9)
  - Shock haemorrhagic [Recovered/Resolved]
  - Respiratory failure [Recovered/Resolved]
  - Exposure during pregnancy [Unknown]
  - Premature delivery [Unknown]
  - Drug ineffective [Unknown]
  - Respiratory tract haemorrhage [Recovered/Resolved]
  - Genital haemorrhage [Recovered/Resolved]
  - Thrombocytopenia [Recovered/Resolved]
  - Circulatory collapse [Recovered/Resolved]
